FAERS Safety Report 6194008-6 (Version None)
Quarter: 2009Q2

REPORT INFORMATION
  Report Type: 
  Country: None (occurrence: None)
  Receive Date: 20090518
  Receipt Date: 20090511
  Transmission Date: 20091009
  Serious: Yes (Hospitalization)
  Sender: FDA-Public Use
  Company Number: PHHY2009BR18035

PATIENT
  Sex: Female
  Weight: 54 kg

DRUGS (4)
  1. SANDOSTATIN LAR [Suspect]
     Indication: ACROMEGALY
     Dosage: 1 APPLICATION EVERY MONTH
     Dates: start: 20070201, end: 20080301
  2. ATENOLOL [Concomitant]
     Indication: HYPERTENSION
     Dosage: 25MG 1 TABLET DAILY
     Route: 048
  3. METICORTEN [Concomitant]
     Indication: PITUITARY TUMOUR
     Dosage: 5MG 1 TABLET DAILY
     Route: 048
     Dates: start: 19980101
  4. PURAN T4 [Concomitant]
     Indication: PITUITARY TUMOUR
     Dosage: 75MG 1 TABLET DAILY
     Route: 048
     Dates: start: 19980101

REACTIONS (6)
  - BLOOD GROWTH HORMONE INCREASED [None]
  - CEREBROVASCULAR ACCIDENT [None]
  - DEEP VEIN THROMBOSIS [None]
  - PARALYSIS [None]
  - PULMONARY EMBOLISM [None]
  - THROMBOSIS [None]
